FAERS Safety Report 10213911 (Version 1)
Quarter: 2014Q2

REPORT INFORMATION
  Report Type: Spontaneous
  Country: PL (occurrence: None)
  Receive Date: 20140529
  Receipt Date: 20140529
  Transmission Date: 20141212
  Serious: Yes (Hospitalization)
  Sender: FDA-Public Use
  Company Number: VAL_03151_2014

PATIENT
  Age: 58 Year
  Sex: Female

DRUGS (2)
  1. METOPROLOL (METOPROLOL - METOPROLOL TARTRATE) [Suspect]
     Indication: ATRIAL FIBRILLATION
  2. PROPAFENONE (PROPAFENONE) [Suspect]
     Indication: ATRIAL FIBRILLATION

REACTIONS (8)
  - Brugada syndrome [None]
  - Palpitations [None]
  - Arrhythmia [None]
  - Syncope [None]
  - Face injury [None]
  - Facial bones fracture [None]
  - Electrocardiogram ST segment abnormal [None]
  - Atrial fibrillation [None]
